FAERS Safety Report 18222301 (Version 2)
Quarter: 2020Q4

REPORT INFORMATION
  Report Type: Spontaneous
  Country: GB (occurrence: GB)
  Receive Date: 20200902
  Receipt Date: 20201015
  Transmission Date: 20210113
  Serious: Yes (Other)
  Sender: FDA-Public Use
  Company Number: GB-PFIZER INC-2020332293

PATIENT
  Age: 12 Year
  Sex: Male

DRUGS (6)
  1. CYTARABINE. [Concomitant]
     Active Substance: CYTARABINE
     Indication: NON-HODGKIN^S LYMPHOMA
     Dosage: UNK, CYCLIC
     Route: 037
  2. RITUXIMAB. [Suspect]
     Active Substance: RITUXIMAB
     Indication: NON-HODGKIN^S LYMPHOMA
     Dosage: UNK, CYCLIC,SIX 21-DAY CYCLES
  3. PREDNISOLONE. [Suspect]
     Active Substance: PREDNISOLONE
     Indication: NON-HODGKIN^S LYMPHOMA
     Dosage: UNK, CYCLIC,SIX 21-DAY CYCLES
  4. CYCLOPHOSPHAMIDE. [Suspect]
     Active Substance: CYCLOPHOSPHAMIDE
     Indication: NON-HODGKIN^S LYMPHOMA
     Dosage: UNK, CYCLIC,SIX 21-DAY CYCLES
  5. VINCRISTINE SULFATE. [Suspect]
     Active Substance: VINCRISTINE SULFATE
     Indication: NON-HODGKIN^S LYMPHOMA
     Dosage: UNK, CYCLIC, SIX 21-DAY CYCLES
  6. DOXORUBICIN [Suspect]
     Active Substance: DOXORUBICIN
     Indication: NON-HODGKIN^S LYMPHOMA
     Dosage: UNK, CYCLIC, SIX 21-DAY CYCLES

REACTIONS (4)
  - Pneumocystis jirovecii pneumonia [Unknown]
  - Neutropenic sepsis [Unknown]
  - Mucosal inflammation [Unknown]
  - Febrile neutropenia [Unknown]
